FAERS Safety Report 5041022-X (Version None)
Quarter: 2006Q2

REPORT INFORMATION
  Report Type: 
  Country: None (occurrence: None)
  Receive Date: 20060630
  Receipt Date: 20060630
  Transmission Date: 20061013
  Serious: Yes (Hospitalization)
  Sender: FDA-Public Use
  Company Number: None

PATIENT
  Age: 54 Year
  Sex: Male

DRUGS (18)
  1. TAXOL [Suspect]
     Indication: NON-SMALL CELL LUNG CANCER
     Dosage: 45 MG/M2
     Dates: start: 20060530
  2. TAXOL [Suspect]
     Indication: NON-SMALL CELL LUNG CANCER
     Dosage: 45 MG/M2
     Dates: start: 20060605
  3. TAXOL [Suspect]
     Indication: NON-SMALL CELL LUNG CANCER
     Dosage: 45 MG/M2
     Dates: start: 20060612
  4. TAXOL [Suspect]
     Indication: NON-SMALL CELL LUNG CANCER
     Dosage: 45 MG/M2
     Dates: start: 20060619
  5. TAXOL [Suspect]
     Indication: NON-SMALL CELL LUNG CANCER
     Dosage: 45 MG/M2
     Dates: start: 20060626
  6. CARBOPLATIN [Suspect]
     Indication: NON-SMALL CELL LUNG CANCER
     Dosage: AUC 2
     Dates: start: 20060530
  7. CARBOPLATIN [Suspect]
     Indication: NON-SMALL CELL LUNG CANCER
     Dosage: AUC 2
     Dates: start: 20060605
  8. CARBOPLATIN [Suspect]
     Indication: NON-SMALL CELL LUNG CANCER
     Dosage: AUC 2
     Dates: start: 20060612
  9. CARBOPLATIN [Suspect]
     Indication: NON-SMALL CELL LUNG CANCER
     Dosage: AUC 2
     Dates: start: 20060619
  10. CARBOPLATIN [Suspect]
     Indication: NON-SMALL CELL LUNG CANCER
     Dosage: AUC 2
     Dates: start: 20060626
  11. AVASTIN [Suspect]
  12. DIFLUCAN [Concomitant]
  13. ATIVAN [Concomitant]
  14. DILAUDID [Concomitant]
  15. DURAGESIC-100 [Concomitant]
  16. COLACE [Concomitant]
  17. DURAGESIC-100 [Concomitant]
  18. HYDROCHLOTOTHIAZIDE [Concomitant]

REACTIONS (6)
  - DYSPHAGIA [None]
  - ERUCTATION [None]
  - NECK PAIN [None]
  - PAIN [None]
  - PRODUCTIVE COUGH [None]
  - SENSATION OF FOREIGN BODY [None]
